FAERS Safety Report 23501502 (Version 1)
Quarter: 2024Q1

REPORT INFORMATION
  Report Type: Report from Study
  Country: US (occurrence: None)
  Receive Date: 20240208
  Receipt Date: 20240208
  Transmission Date: 20240410
  Serious: Yes (Other)
  Sender: FDA-Public Use
  Company Number: 2024A027633

PATIENT
  Age: 37 Year
  Sex: Female

DRUGS (1)
  1. GEFITINIB [Suspect]
     Active Substance: GEFITINIB
     Indication: Non-small cell lung cancer
     Route: 048

REACTIONS (3)
  - Malignant neoplasm progression [Unknown]
  - EGFR gene mutation [Unknown]
  - Drug resistance [Unknown]
